FAERS Safety Report 12133379 (Version 2)
Quarter: 2016Q1

REPORT INFORMATION
  Report Type: Spontaneous
  Country: BE (occurrence: BE)
  Receive Date: 20160301
  Receipt Date: 20160325
  Transmission Date: 20160526
  Serious: Yes (Hospitalization)
  Sender: FDA-Public Use
  Company Number: BE-PFIZER INC-2016109594

PATIENT
  Age: 66 Year
  Sex: Female
  Weight: 52 kg

DRUGS (4)
  1. XGEVA [Concomitant]
     Active Substance: DENOSUMAB
     Indication: METASTASES TO BONE
     Dosage: 120 MG, EVERY 4 WEEKS
     Route: 058
     Dates: start: 20151001
  2. LAXATIVE [Concomitant]
     Active Substance: UNSPECIFIED INGREDIENT
  3. CACIT D3 [Concomitant]
     Active Substance: CALCIUM\CHOLECALCIFEROL
  4. XALKORI [Suspect]
     Active Substance: CRIZOTINIB
     Indication: NON-SMALL CELL LUNG CANCER METASTATIC
     Dosage: 250 MG, 2X/DAY
     Route: 048
     Dates: start: 20151001, end: 20160219

REACTIONS (4)
  - Dyspnoea [Recovering/Resolving]
  - Oedema [Recovering/Resolving]
  - Pleural effusion [Recovered/Resolved with Sequelae]
  - Weight increased [Recovering/Resolving]
